FAERS Safety Report 12378410 (Version 3)
Quarter: 2016Q2

REPORT INFORMATION
  Report Type: Report from Study
  Country: US (occurrence: US)
  Receive Date: 20160517
  Receipt Date: 20160601
  Transmission Date: 20160815
  Serious: Yes (Life-Threatening, Hospitalization)
  Sender: FDA-Public Use
  Company Number: US-PFIZER INC-2016256621

PATIENT
  Age: 18 Year
  Sex: Female
  Weight: 62.8 kg

DRUGS (4)
  1. CYCLOPHOSPHAMIDE. [Suspect]
     Active Substance: CYCLOPHOSPHAMIDE
     Indication: EWING^S SARCOMA
     Dosage: 250 MG/M2, DAYS 1-5
     Route: 042
     Dates: start: 20160502
  2. CRIZOTINIB [Suspect]
     Active Substance: CRIZOTINIB
     Dosage: LOWER DOSE LEVEL
     Dates: start: 20160511, end: 20160518
  3. CRIZOTINIB [Suspect]
     Active Substance: CRIZOTINIB
     Indication: EWING^S SARCOMA
     Dosage: 215 MG/M2 TWICE DAILY, 21 DAYS CYCLE
     Dates: start: 20160502, end: 20160510
  4. TOPOTECAN HYDROCHLORIDE. [Suspect]
     Active Substance: TOPOTECAN HYDROCHLORIDE
     Indication: EWING^S SARCOMA
     Dosage: 0.75 MG/M2, DAYS 1-5
     Route: 042
     Dates: start: 20160502

REACTIONS (3)
  - Sepsis [Recovered/Resolved]
  - Hypotension [Recovered/Resolved]
  - Hypoxia [Recovered/Resolved]

NARRATIVE: CASE EVENT DATE: 20160510
